FAERS Safety Report 5117252-5 (Version None)
Quarter: 2006Q3

REPORT INFORMATION
  Report Type: 
  Country: None (occurrence: None)
  Receive Date: 20060926
  Receipt Date: 20060913
  Transmission Date: 20061208
  Serious: Yes (Other)
  Sender: FDA-Public Use
  Company Number: 2006069706

PATIENT
  Age: 28 Month
  Sex: Male
  Weight: 10.8863 kg

DRUGS (5)
  1. DEPO-MEDROL [Suspect]
     Indication: ASTHMA
     Dosage: 80 MG (80 MG, ONE TIME DOSE), INTRAMUSCULAR
     Route: 030
     Dates: start: 20051224, end: 20051224
  2. DEPO-MEDROL [Suspect]
     Indication: BRONCHITIS
     Dosage: 80 MG (80 MG, ONE TIME DOSE), INTRAMUSCULAR
     Route: 030
     Dates: start: 20051224, end: 20051224
  3. SINGULAIR [Concomitant]
  4. ALBUTEROL [Concomitant]
  5. PULMICORT [Concomitant]

REACTIONS (8)
  - DECREASED ACTIVITY [None]
  - FAT NECROSIS [None]
  - INJECTION SITE PAIN [None]
  - INJECTION SITE REACTION [None]
  - LIMB DISCOMFORT [None]
  - OVERDOSE [None]
  - PHLEBOLITH [None]
  - SKIN ATROPHY [None]
